FAERS Safety Report 4830351-8 (Version None)
Quarter: 2005Q4

REPORT INFORMATION
  Report Type: 
  Country: None (occurrence: None)
  Receive Date: 20051115
  Receipt Date: 20051104
  Transmission Date: 20060501
  Serious: Yes (Death, Disabling)
  Sender: FDA-Public Use
  Company Number: CLOF-10132

PATIENT
  Age: 69 Year
  Sex: Female

DRUGS (6)
  1. CLOFARABINE [Suspect]
     Indication: ACUTE MYELOID LEUKAEMIA
     Dosage: 56.7 MG QD X 5 IV
     Route: 042
     Dates: start: 20050217, end: 20050221
  2. MINOCYCLINE [Concomitant]
  3. ACYCLOVIR [Concomitant]
  4. COLISTIN [Concomitant]
  5. VORICONAZOLE [Concomitant]
  6. NEUPOGEN [Concomitant]

REACTIONS (10)
  - ALPHA HAEMOLYTIC STREPTOCOCCAL INFECTION [None]
  - BLOOD CREATININE INCREASED [None]
  - BLOOD CULTURE POSITIVE [None]
  - DYSPNOEA [None]
  - FEBRILE NEUTROPENIA [None]
  - PNEUMONIA [None]
  - PSEUDOMONAS INFECTION [None]
  - RENAL IMPAIRMENT [None]
  - SEPSIS [None]
  - STAPHYLOCOCCAL INFECTION [None]
